FAERS Safety Report 12929155 (Version 1)
Quarter: 2016Q4

REPORT INFORMATION
  Report Type: Spontaneous
  Country: NZ (occurrence: NZ)
  Receive Date: 20161110
  Receipt Date: 20161110
  Transmission Date: 20170207
  Serious: Yes (Death, Other)
  Sender: FDA-Public Use
  Company Number: NZ-PFIZER INC-2016471902

PATIENT
  Age: 57 Year
  Sex: Female

DRUGS (4)
  1. CYTARABINE. [Suspect]
     Active Substance: CYTARABINE
     Indication: CHEMOTHERAPY
     Dosage: 720 MG, UNK
     Route: 042
     Dates: start: 20160709, end: 20160712
  2. MELPHALAN [Suspect]
     Active Substance: MELPHALAN
     Indication: CHEMOTHERAPY
     Dosage: 250 MG, SINGLE DOSE
     Route: 042
     Dates: start: 20160713
  3. ETOPOSIDE. [Suspect]
     Active Substance: ETOPOSIDE
     Indication: CHEMOTHERAPY
     Dosage: 360 MG, UNK
     Route: 042
     Dates: start: 20160709, end: 20160712
  4. CARMUSTINE [Suspect]
     Active Substance: CARMUSTINE
     Indication: CHEMOTHERAPY
     Dosage: 540 MG, SINGLE DOSE
     Route: 042
     Dates: start: 20160708

REACTIONS (2)
  - Candida sepsis [Recovered/Resolved]
  - Death [Fatal]

NARRATIVE: CASE EVENT DATE: 20160720
